FAERS Safety Report 7682973-7 (Version None)
Quarter: 2011Q3

REPORT INFORMATION
  Report Type: 
  Country: None (occurrence: None)
  Receive Date: 20110815
  Receipt Date: 20110802
  Transmission Date: 20111222
  Serious: Yes (Other)
  Sender: FDA-Public Use
  Company Number: DE-ROCHE-796420

PATIENT
  Sex: Male

DRUGS (2)
  1. IBANDRONATE SODIUM [Suspect]
     Route: 048
     Dates: start: 20101101
  2. METFORMIN HCL [Concomitant]
     Dosage: THE PATIENT DID NOT TAKE THIS DRUG REGULARY, INTAKE IN THE EVENING

REACTIONS (1)
  - IMPAIRED HEALING [None]
